FAERS Safety Report 9870162 (Version 2)
Quarter: 2014Q3

REPORT INFORMATION
  Report Type: Spontaneous
  Country: CA (occurrence: CA)
  Receive Date: 20140205
  Receipt Date: 20140709
  Transmission Date: 20150326
  Serious: Yes (Other)
  Sender: FDA-Public Use
  Company Number: CA-009507513-1401CAN014752

PATIENT
  Sex: Male

DRUGS (3)
  1. VICTRELIS [Suspect]
     Active Substance: BOCEPREVIR
     Indication: CHRONIC HEPATITIS C
     Dosage: 800 MG, 3 IN 1 DAY
     Route: 048
     Dates: end: 20130617
  2. COPEGUS [Suspect]
     Active Substance: RIBAVIRIN
     Dosage: 1000 MG 1 IN 1 DAY / 35 TABLETS WEEK
     Route: 048
     Dates: start: 20130129, end: 20130617
  3. PEGASYS [Suspect]
     Active Substance: PEGINTERFERON ALFA-2A
     Indication: CHRONIC HEPATITIS C
     Dosage: 180 MICROGRAM, 1 IN 1 WEEK / 0.5 ML PRE-FILLED SYRINGE
     Route: 058
     Dates: start: 20130129, end: 20130613

REACTIONS (1)
  - White blood cell count decreased [Unknown]

NARRATIVE: CASE EVENT DATE: 2013
